FAERS Safety Report 10529843 (Version 3)
Quarter: 2015Q1

REPORT INFORMATION
  Report Type: Spontaneous
  Country: US (occurrence: None)
  Receive Date: 20141017
  Receipt Date: 20150306
  Transmission Date: 20150720
  Serious: Yes (Other)
  Sender: FDA-Public Use
  Company Number: US2014001181

PATIENT
  Age: 53 Year
  Sex: Female

DRUGS (8)
  1. D4T (STAVUDINE) [Suspect]
     Active Substance: STAVUDINE
     Indication: HIV INFECTION
     Dates: end: 1996
  2. COMBIVIR [Suspect]
     Active Substance: LAMIVUDINE\ZIDOVUDINE
     Indication: HIV INFECTION
     Dosage: UKNOWN
     Dates: start: 1996
  3. KIVEXA [Suspect]
     Active Substance: ABACAVIR SULFATE\LAMIVUDINE
     Indication: HIV INFECTION
     Dates: end: 1996
  4. SEPTRA (SULFAMETHOXAZOLE, TRIMETHOPRIM) [Concomitant]
  5. STRIBILD [Suspect]
     Active Substance: COBICISTAT\ELVITEGRAVIR\EMTRICITABINE\TENOFOVIR DISOPROXIL FUMARATE
     Indication: HIV INFECTION
     Dosage: UKNOWN
     Dates: start: 20131028, end: 20140410
  6. DDI [Suspect]
     Active Substance: DIDANOSINE
     Indication: HIV INFECTION
  7. TRICIVIR [Suspect]
     Active Substance: ABACAVIR SULFATE\LAMIVUDINE\ZIDOVUDINE
     Indication: HIV INFECTION
  8. KALETRA [Suspect]
     Active Substance: LOPINAVIR\RITONAVIR
     Indication: HIV INFECTION

REACTIONS (6)
  - Treatment noncompliance [None]
  - Multiple-drug resistance [None]
  - Drug dose omission [None]
  - Viral mutation identified [None]
  - Virologic failure [None]
  - Drug ineffective [None]
